FAERS Safety Report 23523607 (Version 1)
Quarter: 2024Q1

REPORT INFORMATION
  Report Type: Spontaneous
  Country: IN (occurrence: IN)
  Receive Date: 20240214
  Receipt Date: 20240214
  Transmission Date: 20240409
  Serious: Yes (Other)
  Sender: FDA-Public Use
  Company Number: IN-PFIZER INC-PV202400020501

PATIENT
  Age: 49 Year
  Sex: Male

DRUGS (1)
  1. PALBOCICLIB [Suspect]
     Active Substance: PALBOCICLIB
     Dosage: 125 MG
     Route: 048

REACTIONS (10)
  - Haematochezia [Unknown]
  - Neutrophil count decreased [Unknown]
  - White blood cell count decreased [Unknown]
  - Hypoaesthesia [Unknown]
  - Muscular weakness [Unknown]
  - Weight increased [Unknown]
  - Dysuria [Unknown]
  - Swelling [Unknown]
  - Haemoglobin decreased [Unknown]
  - Lymphoedema [Unknown]
